FAERS Safety Report 5515167-1 (Version None)
Quarter: 2007Q4

REPORT INFORMATION
  Report Type: 
  Country: None (occurrence: None)
  Receive Date: 20071113
  Receipt Date: 20070129
  Transmission Date: 20080405
  Serious: No
  Sender: FDA-Public Use
  Company Number: A0637390A

PATIENT
  Sex: Male

DRUGS (12)
  1. COREG [Suspect]
     Indication: DRUG USE FOR UNKNOWN INDICATION
     Route: 048
  2. PREDNISONE [Concomitant]
  3. FUROSEMIDE [Concomitant]
  4. THEOPHYLLINE [Concomitant]
  5. SIMVASTATIN [Concomitant]
  6. VALSARTAN [Concomitant]
  7. FINASTERIDE [Concomitant]
  8. POTASSIUM CHLORIDE [Concomitant]
  9. FORADIL [Concomitant]
  10. SPIRIVA [Concomitant]
  11. LEVALBUTEROL HCL [Concomitant]
  12. MOMETASONE FUROATE [Concomitant]

REACTIONS (1)
  - DIZZINESS [None]
